FAERS Safety Report 8153686-2 (Version None)
Quarter: 2012Q1

REPORT INFORMATION
  Report Type: 
  Country: None (occurrence: None)
  Receive Date: 20120221
  Receipt Date: 20120214
  Transmission Date: 20120608
  Serious: Yes (Other)
  Sender: FDA-Public Use
  Company Number: DE-B.I. PHARMACEUTICALS,INC./RIDGEFIELD-2011-DE-06944DE

PATIENT
  Sex: Female
  Weight: 75 kg

DRUGS (7)
  1. METOPROLOL TARTRATE [Concomitant]
  2. PRADAXA [Suspect]
     Indication: ATRIAL FIBRILLATION
  3. DIGITOXIN INJ [Concomitant]
  4. SIMVASTATIN [Concomitant]
     Dosage: 20 MG
     Route: 048
     Dates: start: 20111210
  5. HALDOL [Concomitant]
     Indication: RESTLESSNESS
     Dosage: 9 ANZ
     Route: 048
     Dates: start: 20111223, end: 20120111
  6. METOPROLOL TARTRATE AND HYDROCHLOROTHIAZIDE [Concomitant]
     Indication: ATRIAL FIBRILLATION
     Dosage: 95 MG
     Route: 048
  7. PRADAXA [Suspect]
     Indication: TRANSIENT ISCHAEMIC ATTACK
     Dosage: 220 MG
     Route: 048
     Dates: start: 20111210, end: 20111227

REACTIONS (2)
  - DEEP VEIN THROMBOSIS [None]
  - CELLULITIS [None]
